FAERS Safety Report 4330540-5 (Version None)
Quarter: 2004Q2

REPORT INFORMATION
  Report Type: 
  Country: None (occurrence: None)
  Receive Date: 20040401
  Receipt Date: 20040401
  Transmission Date: 20050107
  Serious: Yes (Other)
  Sender: FDA-Public Use
  Company Number: None

PATIENT
  Age: 58 Year
  Sex: Female
  Weight: 41.8 kg

DRUGS (13)
  1. WARFARIN SODIUM [Suspect]
  2. LACTULOSE [Concomitant]
  3. MORPHINE SULFATE [Concomitant]
  4. METOCLOPRAMIDE [Concomitant]
  5. WARFARIN SODIUM [Concomitant]
  6. DOCUSATE SOD [Concomitant]
  7. MIRTAZAPINE [Concomitant]
  8. MAGNESIUM HYDROXIDE TAB [Concomitant]
  9. PHOSHATES ENEMA [Concomitant]
  10. BISACODYL SUPP [Concomitant]
  11. EPOETIN ALFA [Concomitant]
  12. LANSOPRAZOLE [Concomitant]
  13. ONDANSETRON HCL [Concomitant]

REACTIONS (1)
  - INTERNATIONAL NORMALISED RATIO INCREASED [None]
